FAERS Safety Report 5129302-0 (Version None)
Quarter: 2006Q4

REPORT INFORMATION
  Report Type: 
  Country: None (occurrence: None)
  Receive Date: 20061011
  Receipt Date: 20060928
  Transmission Date: 20070319
  Serious: Yes (Other)
  Sender: FDA-Public Use
  Company Number: 225827

PATIENT
  Age: 44 Year
  Sex: Female
  Weight: 53 kg

DRUGS (3)
  1. XOLAIR [Suspect]
     Indication: ASTHMA
     Dosage: 150 MG, SUBCUTANEOUS
     Route: 058
     Dates: start: 20050815
  2. SYMBICORT [Concomitant]
  3. SINGULAIR [Concomitant]

REACTIONS (4)
  - ARTHROPATHY [None]
  - CHONDROPATHY [None]
  - JOINT INJURY [None]
  - MENISCUS LESION [None]
